FAERS Safety Report 24609335 (Version 1)
Quarter: 2024Q4

REPORT INFORMATION
  Report Type: Spontaneous
  Country: PL (occurrence: PL)
  Receive Date: 20241112
  Receipt Date: 20241112
  Transmission Date: 20250115
  Serious: Yes (Death, Other)
  Sender: JOHNSON AND JOHNSON
  Company Number: PL-JNJFOC-20241127047

PATIENT

DRUGS (5)
  1. DARZALEX [Suspect]
     Active Substance: DARATUMUMAB
     Indication: Plasma cell myeloma
     Route: 058
  2. DARZALEX [Suspect]
     Active Substance: DARATUMUMAB
     Route: 058
  3. DARZALEX [Suspect]
     Active Substance: DARATUMUMAB
     Dosage: WEEK 25 OF TREATMENT
     Route: 058
  4. REVLIMID [Suspect]
     Active Substance: LENALIDOMIDE
     Indication: Plasma cell myeloma
     Route: 048
  5. DEXAMETHASONE [Suspect]
     Active Substance: DEXAMETHASONE
     Indication: Plasma cell myeloma
     Route: 065

REACTIONS (14)
  - General physical health deterioration [Fatal]
  - Myocardial infarction [Fatal]
  - Pulmonary embolism [Unknown]
  - Cataract [Unknown]
  - Hypokalaemia [Unknown]
  - Neutropenia [Unknown]
  - Pneumonia [Fatal]
  - Leukopenia [Unknown]
  - Thrombocytopenia [Unknown]
  - Infection [Unknown]
  - Lymphopenia [Unknown]
  - Hyperglycaemia [Unknown]
  - Anaemia [Unknown]
  - Off label use [Unknown]
